FAERS Safety Report 15896430 (Version 4)
Quarter: 2019Q4

REPORT INFORMATION
  Report Type: Spontaneous
  Country: PT (occurrence: PT)
  Receive Date: 20190131
  Receipt Date: 20191010
  Transmission Date: 20200122
  Serious: Yes (Other)
  Sender: FDA-Public Use
  Company Number: PT-PFIZER INC-2019001825

PATIENT
  Age: 73 Year
  Sex: Female
  Weight: 74 kg

DRUGS (13)
  1. CLOPIDOGREL [Concomitant]
     Active Substance: CLOPIDOGREL BISULFATE
     Dosage: 1 DF, 1X/DAY (1 TABLET AT LUNCH)
  2. DAFLON [Concomitant]
     Dosage: 1 DF, 1X/DAY (1 TABLET AT BREAKFAST)
  3. NEURONTIN [Suspect]
     Active Substance: GABAPENTIN
     Indication: RHEUMATIC DISORDER
     Dosage: 100 MG, TWICE A DAY (1 CAPSULE MORNING, 1 CAPSULE AFTERNOON SNACK)
     Route: 048
  4. RISIDON [Concomitant]
     Active Substance: METFORMIN HYDROCHLORIDE
     Dosage: 1 DF, 1X/DAY (1/2 DF AT BREAKFAST + 1/2 DF AT NIGHT)
  5. ZOLOFT [Concomitant]
     Active Substance: SERTRALINE HYDROCHLORIDE
     Dosage: 1 DF, 1X/DAY (1 TABLET AT BREAKFAST)
  6. NEURONTIN [Suspect]
     Active Substance: GABAPENTIN
     Dosage: 300 MG, ONCE A DAY (1 DF AT NIGHT)
     Route: 048
  7. EUTIROX [Concomitant]
     Active Substance: LEVOTHYROXINE SODIUM
     Dosage: 1 DF (4XWEEK) (1 TABLET FASTING 4X/WEEK)
  8. BEN-U-RON [Concomitant]
     Active Substance: ACETAMINOPHEN
     Dosage: 1 DF, 2X/DAY (1TABLET AT BREAKFAST, 1 TABLET AT LUNCH)
  9. BETMIGA [Concomitant]
     Active Substance: MIRABEGRON
     Dosage: UNK, AS NEEDED
  10. FOLICIL [Concomitant]
     Active Substance: FOLIC ACID
     Dosage: 1 DF, 1X/DAY (1 TABLET AFTERNOON SNACK)
  11. BROMALEX [Concomitant]
     Dosage: 1 DF, 1X/DAY (1 TABLET AT NIGHT)
  12. TRIATEC COMPOSTO [Concomitant]
     Dosage: 1 DF, 1X/DAY (1 TABLET AT BREAKFAST)
  13. EUTIROX [Concomitant]
     Active Substance: LEVOTHYROXINE SODIUM
     Dosage: 1 DF (3XWEEK) (1 TABLET FASTING 3X/WEEK)

REACTIONS (7)
  - Movement disorder [Unknown]
  - Product use in unapproved indication [Unknown]
  - Off label use [Unknown]
  - Vision blurred [Unknown]
  - Dysphonia [Unknown]
  - Arthralgia [Unknown]
  - Muscular weakness [Unknown]
